FAERS Safety Report 19032756 (Version 2)
Quarter: 2021Q1

REPORT INFORMATION
  Report Type: Spontaneous
  Country: GB (occurrence: GB)
  Receive Date: 20210319
  Receipt Date: 20210323
  Transmission Date: 20210420
  Serious: Yes (Death, Hospitalization)
  Sender: FDA-Public Use
  Company Number: GB-PFIZER INC-9903461

PATIENT
  Age: 47 Year
  Sex: Male

DRUGS (4)
  1. SAQUINAVIR [Interacting]
     Active Substance: SAQUINAVIR
     Indication: HIV INFECTION
     Dosage: 400 MG TWICE DAILY
     Route: 048
  2. RITONAVIR. [Interacting]
     Active Substance: RITONAVIR
     Indication: HIV INFECTION
     Dosage: 400 MG TWICE DAILY
     Route: 048
  3. SILDENAFIL CITRATE. [Suspect]
     Active Substance: SILDENAFIL CITRATE
     Indication: ERECTILE DYSFUNCTION
     Dosage: 25 MG, AS NEEDED (HE TOOK A 25 MG DOSE 1 H BEFORE THE ONSET OF CHEST PAIN)
     Route: 048
     Dates: start: 199810
  4. TOBACCO [Concomitant]
     Active Substance: TOBACCO LEAF
     Route: 055

REACTIONS (7)
  - Pulmonary oedema [Fatal]
  - Myocardial infarction [Fatal]
  - Blood cholesterol increased [Fatal]
  - Drug interaction [Fatal]
  - Hypotension [Fatal]
  - Cardiac arrest [Fatal]
  - Hypoxia [Fatal]

NARRATIVE: CASE EVENT DATE: 19981223
